FAERS Safety Report 22108304 (Version 1)
Quarter: 2023Q1

REPORT INFORMATION
  Report Type: Spontaneous
  Country: US (occurrence: None)
  Receive Date: 20230316
  Receipt Date: 20230316
  Transmission Date: 20230417
  Serious: No
  Sender: FDA-Public Use
  Company Number: None

PATIENT
  Age: 61 Year
  Sex: Female
  Weight: 87.75 kg

DRUGS (16)
  1. PAXLOVID [Suspect]
     Active Substance: NIRMATRELVIR\RITONAVIR
     Indication: COVID-19
     Dosage: OTHER QUANTITY : 3 TABLET(S);?FREQUENCY : TWICE A DAY;?
     Route: 048
     Dates: start: 20230304, end: 20230308
  2. ATENOLOL [Concomitant]
  3. LEXAPRO [Concomitant]
  4. Acyclovir [Concomitant]
  5. Nexium [Concomitant]
  6. METFORMIN [Concomitant]
  7. FARXIGA [Concomitant]
  8. ALBUTEROL [Concomitant]
     Active Substance: ALBUTEROL
  9. Multivitamin [Concomitant]
  10. VIT D [Concomitant]
  11. Vit E [Concomitant]
  12. FISH OIL [Concomitant]
  13. CHROMIUM [Concomitant]
  14. picolate [Concomitant]
  15. Evening primrose primrose oil [Concomitant]
  16. Chondroitin Hyaluronic acid [Concomitant]

REACTIONS (3)
  - Malaise [None]
  - SARS-CoV-2 test positive [None]
  - COVID-19 [None]

NARRATIVE: CASE EVENT DATE: 20230304
